FAERS Safety Report 4505127-1 (Version None)
Quarter: 2004Q4

REPORT INFORMATION
  Report Type: 
  Country: None (occurrence: None)
  Receive Date: 20041021
  Receipt Date: 20040903
  Transmission Date: 20050328
  Serious: No
  Sender: FDA-Public Use
  Company Number: 2004UW18696

PATIENT
  Age: 76 Year
  Sex: Male
  Weight: 67.586 kg

DRUGS (3)
  1. PRILOSEC OTC [Suspect]
     Indication: DYSPEPSIA
     Dosage: 1 DF DAILY PO
     Route: 048
     Dates: start: 20040102, end: 20040202
  2. SYNTHROID [Concomitant]
  3. CLEOCIN HCL [Concomitant]

REACTIONS (1)
  - HEART RATE DECREASED [None]
